FAERS Safety Report 7372890-4 (Version None)
Quarter: 2011Q1

REPORT INFORMATION
  Report Type: 
  Country: None (occurrence: None)
  Receive Date: 20110324
  Receipt Date: 20110317
  Transmission Date: 20110831
  Serious: Yes (Other)
  Sender: FDA-Public Use
  Company Number: JP-PFIZER INC-2011059369

PATIENT
  Age: 42 Year
  Sex: Female

DRUGS (6)
  1. GABAPEN [Suspect]
     Indication: EPILEPSY
     Dosage: 600 MG, DAILY
     Route: 048
  2. GABAPEN [Suspect]
     Dosage: 1200 MG, DAILY
     Route: 048
  3. CLONAZEPAM [Concomitant]
     Dosage: 0.5 MG, A DAY
     Route: 048
  4. VALPROATE SODIUM [Concomitant]
     Dosage: 1200 MG, A DAY
     Route: 048
  5. PHENYTOIN [Concomitant]
     Dosage: 200 MG, A DAY
     Route: 048
  6. CARBAMAZEPINE [Concomitant]
     Dosage: 400 MG, A DAY
     Route: 048

REACTIONS (1)
  - ATONIC SEIZURES [None]
